FAERS Safety Report 8699522 (Version 2)
Quarter: 2012Q4

REPORT INFORMATION
  Report Type: Report from Study
  Country: JP (occurrence: JP)
  Receive Date: 20120802
  Receipt Date: 20121030
  Transmission Date: 20130627
  Serious: Yes (Hospitalization)
  Sender: FDA-Public Use
  Company Number: JP-ACTELION-A-JP2007-14470

PATIENT
  Age: 18 Year
  Sex: Female
  Weight: 43 kg

DRUGS (15)
  1. TRACLEER [Suspect]
     Indication: PULMONARY ARTERIAL HYPERTENSION
     Dosage: 31.25 mg, bid
     Route: 048
     Dates: start: 20051222, end: 20060104
  2. TRACLEER [Suspect]
     Dosage: 125 mg, bid
     Route: 048
     Dates: start: 20060126, end: 20061025
  3. TRACLEER [Suspect]
     Dosage: 62.5 mg, bid
     Route: 048
     Dates: start: 20060105, end: 20060117
  4. TRACLEER [Suspect]
     Dosage: 93.75 mg, bid
     Route: 048
     Dates: start: 20060118, end: 20060125
  5. TRACLEER [Suspect]
     Dosage: 62.5 mg, bid
     Route: 048
     Dates: start: 20061026, end: 20061207
  6. EPOPROSTENOL SODIUM [Suspect]
     Indication: PULMONARY ARTERIAL HYPERTENSION
     Dosage: UNK
     Dates: start: 20050329
  7. SILDENAFIL CITRATE [Suspect]
     Indication: PULMONARY ARTERIAL HYPERTENSION
     Dosage: UNK
     Dates: start: 20050323, end: 20060104
  8. FERROUS CITRATE [Suspect]
     Indication: IRON DEFICIENCY
     Dosage: UNK
     Dates: start: 20060425, end: 20060426
  9. TRIAMTERENE [Suspect]
     Indication: RIGHT VENTRICULAR FAILURE
     Dosage: UNK
     Dates: start: 20060426, end: 20061207
  10. WARFARIN POTASSIUM [Concomitant]
  11. FUROSEMIDE [Concomitant]
  12. DIGOXIN [Concomitant]
  13. SPIRONOLACTONE [Concomitant]
  14. BROTIZOLAM [Concomitant]
  15. OSELTAMIVIR PHOSPHATE [Concomitant]

REACTIONS (11)
  - Hepatic function abnormal [Recovering/Resolving]
  - Aspartate aminotransferase increased [Recovering/Resolving]
  - Alanine aminotransferase increased [Recovering/Resolving]
  - Diarrhoea [Recovering/Resolving]
  - Hot flush [Not Recovered/Not Resolved]
  - Visual field defect [Not Recovered/Not Resolved]
  - Headache [Not Recovered/Not Resolved]
  - Right ventricular failure [Recovering/Resolving]
  - Anaemia [Recovering/Resolving]
  - Pruritus [Recovered/Resolved]
  - Gingivitis [Recovered/Resolved]
